FAERS Safety Report 6258571-9 (Version None)
Quarter: 2009Q3

REPORT INFORMATION
  Report Type: 
  Country: None (occurrence: None)
  Receive Date: 20090707
  Receipt Date: 20090625
  Transmission Date: 20100115
  Serious: Yes (Life-Threatening, Other)
  Sender: FDA-Public Use
  Company Number: GB-ROCHE-640970

PATIENT
  Age: 63 Year
  Sex: Male

DRUGS (5)
  1. VALGANCICLOVIR HCL [Suspect]
     Route: 048
  2. BASILIXIMAB [Suspect]
     Route: 065
  3. AZATHIOPRINE [Suspect]
     Route: 065
  4. PREDNISOLONE [Suspect]
     Route: 065
  5. TACROLIMUS [Suspect]
     Route: 065

REACTIONS (6)
  - CYTOMEGALOVIRUS INFECTION [None]
  - CYTOMEGALOVIRUS VIRAEMIA [None]
  - HEPATIC HAEMATOMA [None]
  - INTESTINAL PERFORATION [None]
  - SCLEROSING ENCAPSULATING PERITONITIS [None]
  - SMALL INTESTINAL OBSTRUCTION [None]
